FAERS Safety Report 10777302 (Version 1)
Quarter: 2015Q1

REPORT INFORMATION
  Report Type: Spontaneous
  Country: JP (occurrence: JP)
  Receive Date: 20150209
  Receipt Date: 20150209
  Transmission Date: 20150721
  Serious: Yes (Death, Hospitalization)
  Sender: FDA-Public Use
  Company Number: PHHY2015JP014648

PATIENT
  Age: 23 Year
  Sex: Male

DRUGS (2)
  1. AZATHIOPRINE. [Suspect]
     Active Substance: AZATHIOPRINE
     Indication: PRODUCT USED FOR UNKNOWN INDICATION
     Route: 065
  2. PREDNISOLONE. [Suspect]
     Active Substance: PREDNISOLONE
     Indication: AUTOIMMUNE HAEMOLYTIC ANAEMIA
     Dosage: 25 MG, QD
     Route: 048

REACTIONS (10)
  - Pulmonary embolism [Fatal]
  - Cardiac hypertrophy [Unknown]
  - Pyrexia [Unknown]
  - Respiratory failure [Fatal]
  - Mitral valve incompetence [Unknown]
  - Endocarditis [Unknown]
  - Tonsillar disorder [Unknown]
  - Cardiac valve vegetation [Unknown]
  - Cardiac failure [Unknown]
  - Drug ineffective [Unknown]
